FAERS Safety Report 21802734 (Version 1)
Quarter: 2022Q4

REPORT INFORMATION
  Report Type: Spontaneous
  Country: SE (occurrence: SE)
  Receive Date: 20221231
  Receipt Date: 20221231
  Transmission Date: 20230113
  Serious: Yes (Disabling)
  Sender: FDA-Public Use
  Company Number: None

PATIENT
  Age: 86 Year
  Sex: Male
  Weight: 75 kg

DRUGS (5)
  1. QUETIAPINE [Suspect]
     Active Substance: QUETIAPINE
     Indication: Hallucination
     Dosage: 2 TABLETS DAILY
     Dates: start: 20220219, end: 202206
  2. ALLOPURINOL [Concomitant]
     Active Substance: ALLOPURINOL
     Dosage: 100 MG 1 TABLET PER DAY
     Dates: start: 2002
  3. AMLODIPINE [Concomitant]
     Active Substance: AMLODIPINE BESYLATE
     Dosage: 5 MG 1 TABLET/DAY
     Dates: start: 2005
  4. LOSARTAN [Concomitant]
     Active Substance: LOSARTAN
     Dosage: 50 MG 1 TABLET 1 TIME PER DAY
     Dates: start: 2005
  5. BISOPROLOL [Concomitant]
     Active Substance: BISOPROLOL
     Dosage: 5 MG 1 TABLET/DAY
     Dates: start: 2005

REACTIONS (7)
  - Inflammation [Recovered/Resolved]
  - Confusional state [Not Recovered/Not Resolved]
  - Visual impairment [Recovered/Resolved with Sequelae]
  - Infection [Recovered/Resolved]
  - Hallucination [Recovered/Resolved with Sequelae]
  - Haemoglobin increased [Recovered/Resolved with Sequelae]
  - Speech disorder [Recovered/Resolved]

NARRATIVE: CASE EVENT DATE: 20220301
